FAERS Safety Report 14589334 (Version 1)
Quarter: 2018Q1

REPORT INFORMATION
  Report Type: Other
  Country: HU (occurrence: HU)
  Receive Date: 20180302
  Receipt Date: 20180302
  Transmission Date: 20180509
  Serious: Yes (Other)
  Sender: FDA-Public Use
  Company Number: HU-MACLEODS PHARMACEUTICALS US LTD-MAC2018010469

PATIENT

DRUGS (3)
  1. VALSARTAN. [Suspect]
     Active Substance: VALSARTAN
     Dosage: UNK
     Route: 065
  2. VOLON [Concomitant]
     Indication: ADRENAL GLAND OPERATION
     Dosage: UNK
     Route: 065
  3. VALSARTAN. [Suspect]
     Active Substance: VALSARTAN
     Indication: HYPERTENSION
     Dosage: 80 MG, UNK
     Route: 065

REACTIONS (9)
  - Haemorrhage [Unknown]
  - Hypersensitivity [Recovering/Resolving]
  - Plicated tongue [Unknown]
  - Oral pruritus [Unknown]
  - Oral discomfort [Unknown]
  - Head discomfort [Unknown]
  - Erythema [Unknown]
  - Feeling hot [Unknown]
  - Hypertension [Unknown]

NARRATIVE: CASE EVENT DATE: 201802
